FAERS Safety Report 9960584 (Version 1)
Quarter: 2014Q1

REPORT INFORMATION
  Report Type: Spontaneous
  Country: US (occurrence: None)
  Receive Date: 20140304
  Receipt Date: 20140304
  Transmission Date: 20141002
  Serious: Yes (Other)
  Sender: FDA-Public Use
  Company Number: None

PATIENT
  Age: 17 Year
  Sex: Female
  Weight: 59.88 kg

DRUGS (2)
  1. MICROGESTIN FE 1/20 [Suspect]
     Indication: MENORRHAGIA
     Dosage: 1MG/20MG 1 TAB, DAILY, ORAL
     Route: 048
     Dates: start: 20120621, end: 20120815
  2. MICROGESTIN FE 1/20 [Suspect]
     Indication: HAEMORRHAGE
     Dosage: 1MG/20MG 1 TAB, DAILY, ORAL
     Route: 048
     Dates: start: 20120621, end: 20120815

REACTIONS (2)
  - Menorrhagia [None]
  - Muscle spasms [None]
